FAERS Safety Report 6601328-7 (Version None)
Quarter: 2010Q1

REPORT INFORMATION
  Report Type: 
  Country: None (occurrence: None)
  Receive Date: 20100217
  Receipt Date: 20100208
  Transmission Date: 20100710
  Serious: Yes (Other)
  Sender: FDA-Public Use
  Company Number: SPV1-2010-00217

PATIENT
  Sex: Female

DRUGS (1)
  1. XAGRID (ANAGRELIDE HYDROCHLORIDE) CAPSULE [Suspect]
     Indication: DRUG USE FOR UNKNOWN INDICATION
     Dosage: ORAL
     Route: 048

REACTIONS (1)
  - CREATININE RENAL CLEARANCE DECREASED [None]
